FAERS Safety Report 17911406 (Version 1)
Quarter: 2020Q2

REPORT INFORMATION
  Report Type: Spontaneous
  Country: ES (occurrence: ES)
  Receive Date: 20200618
  Receipt Date: 20200618
  Transmission Date: 20200714
  Serious: Yes (Other)
  Sender: FDA-Public Use
  Company Number: ES-TEVA-2020-ES-1788273

PATIENT
  Age: 22 Month
  Sex: Male
  Weight: 13.5 kg

DRUGS (1)
  1. ETOPOSIDO (518A) [Suspect]
     Active Substance: ETOPOSIDE
     Indication: ACUTE MEGAKARYOCYTIC LEUKAEMIA
     Dosage: 150 MG/M2
     Route: 042
     Dates: start: 20200327, end: 20200331

REACTIONS (1)
  - Rash macular [Recovered/Resolved]

NARRATIVE: CASE EVENT DATE: 20200331
